FAERS Safety Report 7562722-3 (Version None)
Quarter: 2011Q2

REPORT INFORMATION
  Report Type: 
  Country: None (occurrence: None)
  Receive Date: 20110622
  Receipt Date: 20110616
  Transmission Date: 20111010
  Serious: Yes (Disabling, Other)
  Sender: FDA-Public Use
  Company Number: US-PFIZER INC-2011061682

PATIENT
  Sex: Female

DRUGS (3)
  1. NAPROXEN [Concomitant]
     Indication: ANTIINFLAMMATORY THERAPY
     Dosage: UNK
     Dates: start: 20060101, end: 20090101
  2. AZITHROMYCIN [Concomitant]
     Indication: ANTIBIOTIC THERAPY
     Dosage: UNK
     Dates: start: 20060101, end: 20090101
  3. CHANTIX [Suspect]
     Indication: SMOKING CESSATION THERAPY
     Dosage: UNK
     Dates: start: 20070315, end: 20071001

REACTIONS (11)
  - POST-TRAUMATIC STRESS DISORDER [None]
  - OBSESSIVE-COMPULSIVE DISORDER [None]
  - COGNITIVE DISORDER [None]
  - AMNESIA [None]
  - AGGRESSION [None]
  - NIGHTMARE [None]
  - CONVULSION [None]
  - DISTURBANCE IN ATTENTION [None]
  - SUICIDAL BEHAVIOUR [None]
  - DISSOCIATION [None]
  - ANXIETY [None]
